FAERS Safety Report 14173417 (Version 1)
Quarter: 2017Q4

REPORT INFORMATION
  Report Type: Report from Study
  Country: MX (occurrence: MX)
  Receive Date: 20171109
  Receipt Date: 20171109
  Transmission Date: 20180321
  Serious: Yes (Other)
  Sender: FDA-Public Use
  Company Number: MX-ROCHE-2016993

PATIENT
  Age: 44 Year
  Sex: Female

DRUGS (2)
  1. HERCEPTIN [Suspect]
     Active Substance: TRASTUZUMAB
     Indication: BREAST CANCER
     Route: 042
     Dates: start: 201411, end: 201501
  2. TAMOXIFEN [Concomitant]
     Active Substance: TAMOXIFEN
     Dosage: ONGOING
     Route: 048
     Dates: start: 201401

REACTIONS (16)
  - Decreased appetite [Unknown]
  - Breast ulceration [Unknown]
  - Peripheral swelling [Unknown]
  - Hypotension [Unknown]
  - Disease progression [Unknown]
  - Arthralgia [Unknown]
  - Venous injury [Unknown]
  - Weight increased [Unknown]
  - Drug ineffective [Unknown]
  - Dysgeusia [Unknown]
  - Skin ulcer [Unknown]
  - Pain in extremity [Unknown]
  - Gastric ulcer [Unknown]
  - Blood triglycerides increased [Unknown]
  - Off label use [Unknown]
  - Fatigue [Unknown]
